FAERS Safety Report 9013837 (Version 1)
Quarter: 2013Q1

REPORT INFORMATION
  Report Type: Spontaneous
  Country: US (occurrence: US)
  Receive Date: 20130115
  Receipt Date: 20130115
  Transmission Date: 20140127
  Serious: Yes (Hospitalization)
  Sender: FDA-Public Use
  Company Number: US-BAYER-2013-004461

PATIENT
  Age: 25 Year
  Sex: Female
  Weight: 61.22 kg

DRUGS (6)
  1. YAZ [Suspect]
  2. OCELLA [Suspect]
  3. ZOLOFT [Concomitant]
     Dosage: 50 MG, EVERY DAY
     Route: 048
  4. FISH OIL [Concomitant]
     Dosage: 1200 MG, BID
  5. MULTIVITAMIN [Concomitant]
     Indication: NUTRITIONAL SUPPLEMENTATION
     Dosage: 1 TAB (TABLET) / PER DAY
  6. MAXEPA [Concomitant]

REACTIONS (2)
  - Pulmonary embolism [None]
  - Vena cava thrombosis [None]
